FAERS Safety Report 9584358 (Version 1)
Quarter: 2013Q4

REPORT INFORMATION
  Report Type: Spontaneous
  Country: US (occurrence: US)
  Receive Date: 20131002
  Receipt Date: 20131002
  Transmission Date: 20140711
  Serious: No
  Sender: FDA-Public Use
  Company Number: US-AMGEN-USASP2013052457

PATIENT
  Age: 64 Year
  Sex: Female
  Weight: 96.15 kg

DRUGS (21)
  1. ENBREL [Suspect]
     Indication: RHEUMATOID ARTHRITIS
     Dosage: UNK
     Route: 065
     Dates: start: 2001, end: 2005
  2. ACULAR [Concomitant]
     Dosage: UNK
  3. ALLEGRA [Concomitant]
     Dosage: UNK
  4. AZULFIDINE [Concomitant]
     Dosage: UNK
  5. CALCIUM + VITAMIN D                /01483701/ [Concomitant]
     Dosage: UNK
  6. COMBIVENT [Concomitant]
     Dosage: UNK
  7. CYMBALTA [Concomitant]
     Dosage: UNK
  8. ERYTHROMYCIN [Concomitant]
     Dosage: UNK
  9. FISH OIL [Concomitant]
     Dosage: UNK
  10. FLOVENT [Concomitant]
     Dosage: UNK
  11. GLUCOPHAGE [Concomitant]
     Dosage: UNK
  12. HYDROXYCHLOROQUINE [Concomitant]
     Dosage: UNK
  13. MULTIVITAMINS, PLAIN [Concomitant]
     Dosage: UNK
  14. NEXIUM                             /01479302/ [Concomitant]
     Dosage: UNK
  15. NITROQUICK [Concomitant]
     Dosage: UNK
  16. NORTRIPTYLINE [Concomitant]
     Dosage: UNK
  17. SALSALATE [Concomitant]
     Dosage: UNK
  18. SYNTHROID [Concomitant]
     Dosage: UNK
  19. URSO                               /00465701/ [Concomitant]
     Dosage: UNK
  20. VERAPAMIL [Concomitant]
     Dosage: UNK
  21. VYTORIN [Concomitant]
     Dosage: UNK

REACTIONS (1)
  - Drug ineffective [Unknown]
